FAERS Safety Report 18140427 (Version 8)
Quarter: 2020Q4

REPORT INFORMATION
  Report Type: Spontaneous
  Country: US (occurrence: US)
  Receive Date: 20200812
  Receipt Date: 20201125
  Transmission Date: 20210113
  Serious: No
  Sender: FDA-Public Use
  Company Number: US-PFIZER INC-2020246491

PATIENT
  Age: 12 Year
  Sex: Female
  Weight: 33.11 kg

DRUGS (4)
  1. GENOTROPIN [Suspect]
     Active Substance: SOMATROPIN
     Indication: GROWTH RETARDATION
     Dosage: 1.4 MG, ONCE A DAY
     Dates: start: 202006
  2. FLONASE [Concomitant]
     Active Substance: FLUTICASONE PROPIONATE
     Dosage: UNK
  3. GENOTROPIN [Suspect]
     Active Substance: SOMATROPIN
     Indication: SHORT STATURE
  4. CLARITIN [Concomitant]
     Active Substance: LORATADINE
     Dosage: UNK

REACTIONS (5)
  - Drug dose omission by device [Unknown]
  - Device breakage [Unknown]
  - Device leakage [Unknown]
  - Device use error [Unknown]
  - Incorrect dose administered [Unknown]

NARRATIVE: CASE EVENT DATE: 202006
